FAERS Safety Report 5592919-3 (Version None)
Quarter: 2008Q1

REPORT INFORMATION
  Report Type: 
  Country: None (occurrence: None)
  Receive Date: 20080116
  Receipt Date: 20080110
  Transmission Date: 20080703
  Serious: Yes (Other)
  Sender: FDA-Public Use
  Company Number: US-ALLERGAN-0800392US

PATIENT
  Sex: Female

DRUGS (1)
  1. BOTOX COSMETIC [Suspect]
     Indication: SKIN WRINKLING
     Dosage: 25 UNITS, SINGLE
     Route: 030
     Dates: start: 20071227, end: 20071227

REACTIONS (3)
  - BOWEL MOVEMENT IRREGULARITY [None]
  - MUSCULAR WEAKNESS [None]
  - URINE OUTPUT DECREASED [None]
